FAERS Safety Report 20022989 (Version 1)
Quarter: 2021Q4

REPORT INFORMATION
  Report Type: Spontaneous
  Country: BR (occurrence: BR)
  Receive Date: 20211102
  Receipt Date: 20211102
  Transmission Date: 20220303
  Serious: Yes (Other)
  Sender: FDA-Public Use
  Company Number: BR-NOVARTISPH-NVSC2021BR248735

PATIENT
  Sex: Female

DRUGS (1)
  1. ROSUVASTATIN [Suspect]
     Active Substance: ROSUVASTATIN
     Indication: Hypocholesterolaemia
     Dosage: UNK
     Route: 065

REACTIONS (15)
  - Dyspnoea at rest [Unknown]
  - Diabetes mellitus [Unknown]
  - Fatigue [Unknown]
  - Feeling cold [Unknown]
  - Chills [Unknown]
  - Pain in extremity [Unknown]
  - Joint swelling [Unknown]
  - Peripheral swelling [Unknown]
  - Hypoaesthesia [Unknown]
  - Hypoaesthesia oral [Unknown]
  - Tachycardia [Unknown]
  - Illness [Unknown]
  - Fall [Unknown]
  - Cough [Unknown]
  - Hypertension [Unknown]
